FAERS Safety Report 7114459-2 (Version None)
Quarter: 2010Q4

REPORT INFORMATION
  Report Type: 
  Country: None (occurrence: None)
  Receive Date: 20101119
  Receipt Date: 20101105
  Transmission Date: 20110411
  Serious: Yes (Life-Threatening, Hospitalization, Other)
  Sender: FDA-Public Use
  Company Number: GB-ELI_LILLY_AND_COMPANY-GB201011001388

PATIENT
  Age: 48 Year
  Sex: Female

DRUGS (4)
  1. ZYPREXA [Suspect]
     Dosage: 5 MG, DAILY (1/D)
     Route: 048
  2. CITALOPRAM [Concomitant]
     Dosage: 20 MG, 2/D
     Route: 048
  3. DIAZEPAM [Concomitant]
     Dosage: 2 MG, 3/D
     Route: 048
  4. ZOPICLONE [Concomitant]
     Dosage: 3.75 MG, UNK
     Route: 048

REACTIONS (2)
  - RESPIRATORY ARREST [None]
  - SYNCOPE [None]
